FAERS Safety Report 15296656 (Version 1)
Quarter: 2018Q3

REPORT INFORMATION
  Report Type: Spontaneous
  Country: TR (occurrence: TR)
  Receive Date: 20180820
  Receipt Date: 20180820
  Transmission Date: 20181010
  Serious: Yes (Life-Threatening, Hospitalization, Other)
  Sender: FDA-Public Use
  Company Number: TR-MYLANLABS-2018M1062152

PATIENT
  Age: 9 Year
  Sex: Female

DRUGS (1)
  1. TRETINOIN. [Suspect]
     Active Substance: TRETINOIN
     Indication: ACUTE PROMYELOCYTIC LEUKAEMIA
     Dosage: 45 MG/M2, UNK
     Route: 065

REACTIONS (5)
  - Acute promyelocytic leukaemia differentiation syndrome [Unknown]
  - Pulmonary oedema [Recovering/Resolving]
  - Thrombophlebitis [Recovered/Resolved]
  - Carditis [Recovering/Resolving]
  - Acute febrile neutrophilic dermatosis [Recovered/Resolved]
